FAERS Safety Report 22539889 (Version 1)
Quarter: 2023Q2

REPORT INFORMATION
  Report Type: Spontaneous
  Country: SE (occurrence: None)
  Receive Date: 20230609
  Receipt Date: 20230609
  Transmission Date: 20230722
  Serious: Yes (Other)
  Sender: FDA-Public Use
  Company Number: 2023A126555

PATIENT
  Age: 87 Year
  Sex: Male

DRUGS (14)
  1. ROSUVASTATIN [Suspect]
     Active Substance: ROSUVASTATIN
  2. ATORVASTATIN [Suspect]
     Active Substance: ATORVASTATIN
  3. EZETIMIBE [Suspect]
     Active Substance: EZETIMIBE
  4. MOVICOL [Concomitant]
     Active Substance: POLYETHYLENE GLYCOL 3350\POTASSIUM CHLORIDE\SODIUM BICARBONATE\SODIUM CHLORIDE
     Dosage: 1 DOSE IF NECESSARY 1-3 GENGER DAILY1.0DF INTERMITTENT
     Dates: start: 20220622
  5. FURIX [Concomitant]
     Dates: start: 20181109
  6. IMDUR [Concomitant]
     Active Substance: ISOSORBIDE MONONITRATE
     Dates: start: 20191002
  7. UREA [Concomitant]
     Active Substance: UREA
     Dosage: 1 APPLICATION 1 GENGER DAILY
     Dates: start: 20230203
  8. DESLORATADINE [Concomitant]
     Active Substance: DESLORATADINE
     Dosage: 1-2 TABLETS 1-2 GENGER DAILY
     Dates: start: 20190613
  9. CLOBETASOL [Concomitant]
     Active Substance: CLOBETASOL
     Dosage: ACCORDING TO SPECIAL PRESCRIPTION: 1 APPLICATION TO THE KVELL FOR 2 WEEKS, THEN 2 KVELLAR / WEEK
     Dates: start: 20200108
  10. PROPYDERM [Concomitant]
     Dosage: 1 APPLICATION 2 GENGER DAILY, EVERY 12 HOURS
     Dates: start: 20180904
  11. OXYCODONE HYDROCHLORIDE [Concomitant]
     Active Substance: OXYCODONE HYDROCHLORIDE
     Dosage: 1 CAPSULE IF NEEDED5.0MG AS REQUIRED
  12. EMOVAT [Concomitant]
     Dosage: ACCORDING TO SPECIAL PRESCRIPTION: APPLIED 2 TIMES DAILY FOR 2 WEEKS, THEN 2 QUINTALS PER WEEK
  13. COUDIN [Concomitant]
     Dosage: AS PRESCRIBED 1 TABLET 1 GENGER DAILY
     Dates: start: 20180214
  14. CANDESARTAN [Concomitant]
     Active Substance: CANDESARTAN
     Dates: start: 20201030

REACTIONS (2)
  - Muscle atrophy [Recovering/Resolving]
  - Myopathy [Recovering/Resolving]
